FAERS Safety Report 18268907 (Version 1)
Quarter: 2020Q3

REPORT INFORMATION
  Report Type: Spontaneous
  Country: US (occurrence: US)
  Receive Date: 20200915
  Receipt Date: 20200915
  Transmission Date: 20201103
  Serious: Yes (Hospitalization, Other)
  Sender: FDA-Public Use
  Company Number: US-BEXIMCO-2020BEX00084

PATIENT
  Age: 86 Year
  Sex: Female
  Weight: 74.83 kg

DRUGS (18)
  1. METFORMIN HYDROCHLORIDE. [Suspect]
     Active Substance: METFORMIN HYDROCHLORIDE
     Dosage: 500 MG, 4X/DAY
     Route: 048
  2. LISINOPRIL. [Suspect]
     Active Substance: LISINOPRIL
  3. LACTULOSE. [Concomitant]
     Active Substance: LACTULOSE
  4. TRESIBA [Suspect]
     Active Substance: INSULIN DEGLUDEC
     Dosage: UNK
  5. POTASSIUM [Concomitant]
     Active Substance: POTASSIUM
  6. UNSPECIFIED SUPPLEMENT DRINK [Concomitant]
  7. METOPROLOL SUCCER [Concomitant]
     Dosage: 50 MG, 1X/DAY
     Dates: end: 202008
  8. METOPROLOL SUCCER [Concomitant]
     Dosage: 25 MG, 1X/DAY
     Dates: start: 202008
  9. VALIUM [Concomitant]
     Active Substance: DIAZEPAM
     Dosage: 0.5 DOSAGE UNITS, AS NEEDED
  10. LASIX [Concomitant]
     Active Substance: FUROSEMIDE
     Dosage: UNK, AS NEEDED
  11. STOOL SOFTENER (DOCUSATE) [Concomitant]
     Active Substance: DOCUSATE
     Dosage: 2?3 TIMES DAILY
  12. ASPIRIN. [Concomitant]
     Active Substance: ASPIRIN
     Dosage: 81 MG
  13. METFORMIN HYDROCHLORIDE. [Suspect]
     Active Substance: METFORMIN HYDROCHLORIDE
     Indication: TYPE 2 DIABETES MELLITUS
     Dosage: 500 MG, 2X/DAY (MORNING AND NIGHT)
     Route: 048
  14. CLOPIDOGREL [Concomitant]
     Active Substance: CLOPIDOGREL BISULFATE
     Dosage: UNK, 1X/DAY
  15. VITAMIN C [Concomitant]
     Active Substance: ASCORBIC ACID
  16. ONE?A?DAY NOS [Concomitant]
     Active Substance: MINERALS\VITAMINS
     Dosage: ^IF DON^T USE SUPPLEMENT DRINK^
  17. VITAMIN D [Concomitant]
     Active Substance: VITAMIN D NOS
  18. METFORMIN HYDROCHLORIDE. [Suspect]
     Active Substance: METFORMIN HYDROCHLORIDE
     Dosage: 500 MG, 2X/DAY (MORNING AND NIGHT)
     Route: 048

REACTIONS (12)
  - Pain [Not Recovered/Not Resolved]
  - Product odour abnormal [Recovered/Resolved]
  - Asthenia [Recovered/Resolved]
  - Drug hypersensitivity [Unknown]
  - Diarrhoea [Recovered/Resolved]
  - Myalgia [Unknown]
  - Recalled product administered [Unknown]
  - Coronary artery occlusion [Unknown]
  - Fall [Recovered/Resolved]
  - Constipation [Not Recovered/Not Resolved]
  - Blood glucose increased [Recovered/Resolved]
  - Unevaluable event [Unknown]

NARRATIVE: CASE EVENT DATE: 202008
